FAERS Safety Report 19913159 (Version 1)
Quarter: 2021Q4

REPORT INFORMATION
  Report Type: Spontaneous
  Country: CN (occurrence: CN)
  Receive Date: 20211004
  Receipt Date: 20211004
  Transmission Date: 20220303
  Serious: Yes (Death, Hospitalization)
  Sender: FDA-Public Use
  Company Number: CN-TEVA-2021-CN-1960960

PATIENT
  Age: 20 Month
  Sex: Male

DRUGS (10)
  1. CLOPIDOGREL [Suspect]
     Active Substance: CLOPIDOGREL BISULFATE
     Indication: Kawasaki^s disease
     Dosage: 1 MG/KG DAILY;
     Route: 065
  2. CLOPIDOGREL [Suspect]
     Active Substance: CLOPIDOGREL BISULFATE
     Indication: Cerebral infarction
  3. CLOPIDOGREL [Suspect]
     Active Substance: CLOPIDOGREL BISULFATE
     Indication: Coronary artery thrombosis
  4. ASPIRIN [Suspect]
     Active Substance: ASPIRIN
     Indication: Kawasaki^s disease
     Dosage: 30 MG/KG DAILY;
     Route: 048
  5. ASPIRIN [Suspect]
     Active Substance: ASPIRIN
     Indication: Cerebral infarction
     Dosage: 5 MG/KG DAILY;
     Route: 048
  6. ASPIRIN [Suspect]
     Active Substance: ASPIRIN
     Indication: Coronary artery thrombosis
     Dosage: 3 MG/KG DAILY;
     Route: 048
  7. UROKINASE [Suspect]
     Active Substance: UROKINASE
     Indication: Cerebral infarction
     Dosage: 4000 IU/KG DAILY; (4X10*3 U/KG/DAY FOR 3 DAYS)
     Route: 042
  8. UROKINASE [Suspect]
     Active Substance: UROKINASE
     Indication: Coronary artery thrombosis
  9. MANNITOL [Concomitant]
     Active Substance: MANNITOL
     Indication: Coronary artery thrombosis
     Route: 065
  10. MANNITOL [Concomitant]
     Active Substance: MANNITOL
     Indication: Cerebral infarction

REACTIONS (4)
  - Haemorrhagic stroke [Fatal]
  - Brain oedema [Fatal]
  - Brain herniation [Fatal]
  - Drug ineffective [Fatal]
